FAERS Safety Report 7593370-7 (Version None)
Quarter: 2011Q3

REPORT INFORMATION
  Report Type: 
  Country: None (occurrence: None)
  Receive Date: 20110706
  Receipt Date: 20110627
  Transmission Date: 20111222
  Serious: No
  Sender: FDA-Public Use
  Company Number: US-PFIZER INC-2011106058

PATIENT
  Sex: Female
  Weight: 77.098 kg

DRUGS (4)
  1. TOPROL-XL [Concomitant]
     Indication: HYPERTENSION
     Dosage: UNK
  2. SYNTHROID [Concomitant]
     Indication: THYROID DISORDER
     Dosage: UNK
  3. LIPITOR [Concomitant]
     Indication: BLOOD CHOLESTEROL INCREASED
     Dosage: UNK
  4. ANTIVERT [Suspect]
     Indication: VERTIGO
     Dosage: 25 MG, 3X/DAY
     Route: 048
     Dates: start: 20070101

REACTIONS (1)
  - NO ADVERSE EVENT [None]
